FAERS Safety Report 5803360-X (Version None)
Quarter: 2008Q3

REPORT INFORMATION
  Report Type: 
  Country: None (occurrence: None)
  Receive Date: 20080708
  Receipt Date: 20080630
  Transmission Date: 20090109
  Serious: Yes (Hospitalization)
  Sender: FDA-Public Use
  Company Number: FR-AVENTIS-200812487FR

PATIENT
  Age: 86 Year
  Sex: Female
  Weight: 67 kg

DRUGS (6)
  1. TRIATEC                            /00885601/ [Suspect]
     Dosage: DOSE: 2.5-0-2.5
     Route: 048
     Dates: end: 20080415
  2. LASIX [Suspect]
     Dosage: DOSE: 40-0-20
     Route: 048
     Dates: end: 20080415
  3. ATHYMIL [Suspect]
     Dosage: DOSE: 0-0-30
     Route: 048
     Dates: end: 20080415
  4. CHRONADALATE [Suspect]
     Dosage: DOSE: 30-0-0
     Route: 048
     Dates: end: 20080415
  5. STILNOX                            /00914901/ [Suspect]
     Dosage: DOSE: 0-0-10
     Route: 048
     Dates: end: 20080415
  6. OROCAL D3 [Concomitant]
     Dosage: DOSE: 1-0-0
     Route: 048
     Dates: end: 20080415

REACTIONS (8)
  - BUNDLE BRANCH BLOCK RIGHT [None]
  - CARDIOGENIC SHOCK [None]
  - CONDITION AGGRAVATED [None]
  - ECCHYMOSIS [None]
  - FALL [None]
  - HAEMATOMA [None]
  - RENAL FAILURE [None]
  - RHABDOMYOLYSIS [None]
